FAERS Safety Report 4741364-9 (Version None)
Quarter: 2005Q3

REPORT INFORMATION
  Report Type: 
  Country: None (occurrence: None)
  Receive Date: 20050810
  Receipt Date: 20050729
  Transmission Date: 20060218
  Serious: Yes (Other)
  Sender: FDA-Public Use
  Company Number: PHBS2005AR11206

PATIENT
  Age: 40 Year
  Sex: Male

DRUGS (2)
  1. GLEEVEC [Suspect]
     Indication: CHRONIC MYELOID LEUKAEMIA
     Dosage: 400 MG/D
     Route: 065
  2. GLEEVEC [Suspect]
     Dosage: 200 MG/D
     Route: 065

REACTIONS (3)
  - HEPATITIS [None]
  - HEPATOTOXICITY [None]
  - TRANSAMINASES INCREASED [None]
